FAERS Safety Report 4805619-1 (Version None)
Quarter: 2005Q4

REPORT INFORMATION
  Report Type: 
  Country: None (occurrence: None)
  Receive Date: 20051018
  Receipt Date: 20051005
  Transmission Date: 20060501
  Serious: Yes (Other)
  Sender: FDA-Public Use
  Company Number: 2005138161

PATIENT
  Sex: Female

DRUGS (4)
  1. AROMASIN [Suspect]
     Indication: BREAST CANCER
     Dosage: 25 MG (25 MG, DAILY), ORAL
     Route: 048
     Dates: start: 20030901
  2. PREVACID [Concomitant]
  3. ZOCOR [Concomitant]
  4. ALLOPURINOL [Concomitant]

REACTIONS (8)
  - BALANCE DISORDER [None]
  - BONE DISORDER [None]
  - CONSTIPATION [None]
  - FALL [None]
  - HEAD INJURY [None]
  - MUSCULOSKELETAL STIFFNESS [None]
  - WALKING AID USER [None]
  - WEIGHT INCREASED [None]
